FAERS Safety Report 5884932-3 (Version None)
Quarter: 2008Q3

REPORT INFORMATION
  Report Type: 
  Country: None (occurrence: None)
  Receive Date: 20080916
  Receipt Date: 20080905
  Transmission Date: 20090109
  Serious: Yes (Congenital Anomaly)
  Sender: FDA-Public Use
  Company Number: A0747567A

PATIENT

DRUGS (1)
  1. PAXIL [Suspect]
     Indication: ANXIETY

REACTIONS (4)
  - DRUG EXPOSURE DURING PREGNANCY [None]
  - MATERNAL DRUGS AFFECTING FOETUS [None]
  - MULTIPLE CONGENITAL ABNORMALITIES [None]
  - VENTRICULAR SEPTAL DEFECT [None]
